FAERS Safety Report 4712920-9 (Version None)
Quarter: 2005Q3

REPORT INFORMATION
  Report Type: 
  Country: None (occurrence: None)
  Receive Date: 20050713
  Receipt Date: 20050705
  Transmission Date: 20060218
  Serious: Yes (Death)
  Sender: FDA-Public Use
  Company Number: US-BRISTOL-MYERS SQUIBB COMPANY-13031588

PATIENT
  Age: 22 Year
  Sex: Male

DRUGS (1)
  1. SERZONE [Suspect]
     Dates: start: 19970101, end: 20020101

REACTIONS (1)
  - HEPATIC FAILURE [None]
